FAERS Safety Report 5034497-3 (Version None)
Quarter: 2006Q2

REPORT INFORMATION
  Report Type: 
  Country: None (occurrence: None)
  Receive Date: 20060623
  Receipt Date: 20060623
  Transmission Date: 20061013
  Serious: No
  Sender: FDA-Public Use
  Company Number: None

PATIENT
  Age: 68 Year
  Sex: Female
  Weight: 67.1324 kg

DRUGS (1)
  1. ENBREL [Suspect]

REACTIONS (6)
  - BLOOD URINE PRESENT [None]
  - INJECTION SITE DISCOLOURATION [None]
  - INJECTION SITE MASS [None]
  - INJECTION SITE ULCER [None]
  - RENAL DISORDER [None]
  - SCAR [None]
